FAERS Safety Report 5392292-X (Version None)
Quarter: 2007Q3

REPORT INFORMATION
  Report Type: 
  Country: None (occurrence: None)
  Receive Date: 20070720
  Receipt Date: 20070711
  Transmission Date: 20080115
  Serious: Yes (Hospitalization)
  Sender: FDA-Public Use
  Company Number: US-AMGEN-STX233829

PATIENT
  Sex: Male

DRUGS (1)
  1. ENBREL [Suspect]
     Indication: ANKYLOSING SPONDYLITIS
     Dates: start: 20010201

REACTIONS (6)
  - ANKLE FRACTURE [None]
  - COLECTOMY [None]
  - COMPRESSION FRACTURE [None]
  - CORONARY ARTERY OCCLUSION [None]
  - FOOT FRACTURE [None]
  - MYALGIA [None]
